FAERS Safety Report 8572725-8 (Version None)
Quarter: 2012Q3

REPORT INFORMATION
  Report Type: 
  Country: None (occurrence: None)
  Receive Date: 20120806
  Receipt Date: 20120731
  Transmission Date: 20120928
  Serious: Yes (Hospitalization, Other)
  Sender: FDA-Public Use
  Company Number: US-PFIZER INC-2012187048

PATIENT
  Sex: Male

DRUGS (1)
  1. CHANTIX [Suspect]
     Dosage: UNK
     Dates: start: 20090423

REACTIONS (30)
  - MUSCLE ATROPHY [None]
  - GAIT DISTURBANCE [None]
  - JOINT RANGE OF MOTION DECREASED [None]
  - FIBROMYALGIA [None]
  - WEIGHT INCREASED [None]
  - RADICULOPATHY [None]
  - ERECTILE DYSFUNCTION [None]
  - EMOTIONAL DISTRESS [None]
  - LOSS OF CONSCIOUSNESS [None]
  - HAND FRACTURE [None]
  - LIMB INJURY [None]
  - JOINT DISLOCATION [None]
  - TIBIA FRACTURE [None]
  - WRIST FRACTURE [None]
  - OSTEOARTHRITIS [None]
  - AMNESIA [None]
  - PNEUMONIA [None]
  - ACTIVITIES OF DAILY LIVING IMPAIRED [None]
  - INJURY [None]
  - MOBILITY DECREASED [None]
  - HIP FRACTURE [None]
  - FOOT FRACTURE [None]
  - CONFUSIONAL STATE [None]
  - MUSCLE SPASMS [None]
  - NEURALGIA [None]
  - SLEEP DISORDER [None]
  - LIGAMENT RUPTURE [None]
  - ROAD TRAFFIC ACCIDENT [None]
  - OSTEONECROSIS [None]
  - PAIN [None]
